FAERS Safety Report 5703653-0 (Version None)
Quarter: 2008Q2

REPORT INFORMATION
  Report Type: 
  Country: None (occurrence: None)
  Receive Date: 20080411
  Receipt Date: 20080402
  Transmission Date: 20081010
  Serious: Yes (Other)
  Sender: FDA-Public Use
  Company Number: US-GENENTECH-259055

PATIENT

DRUGS (4)
  1. BEVACIZUMAB [Suspect]
     Indication: NEOPLASM MALIGNANT
     Dosage: 5 MG/KG, UNKNOWN
     Route: 065
  2. FLUOROURACIL [Concomitant]
     Indication: NEOPLASM MALIGNANT
     Dosage: 800 MG/M2, UNK
  3. HYDROXYUREA [Concomitant]
     Indication: NEOPLASM MALIGNANT
     Dosage: 1000 MG, UNKNOWN
     Route: 065
  4. RADIATION THERAPY [Concomitant]
     Indication: NEOPLASM MALIGNANT

REACTIONS (2)
  - NECROSIS [None]
  - ULCER [None]
